FAERS Safety Report 21573231 (Version 2)
Quarter: 2022Q4

REPORT INFORMATION
  Report Type: Spontaneous
  Country: US (occurrence: US)
  Receive Date: 20221109
  Receipt Date: 20221208
  Transmission Date: 20230113
  Serious: Yes (Life-Threatening, Hospitalization)
  Sender: FDA-Public Use
  Company Number: US-TEVA-2022-US-2823491

PATIENT
  Age: 13 Year
  Sex: Male
  Weight: 60 kg

DRUGS (1)
  1. NALOXONE [Suspect]
     Active Substance: NALOXONE
     Indication: Respiratory depression
     Dosage: RECEIVED WITH MULTIPLE DOSES OF NALOXONE 40MCG, TO A TOTAL DOSE OF 200MCG
     Route: 065

REACTIONS (2)
  - Pulmonary oedema [Recovering/Resolving]
  - Respiratory acidosis [Unknown]
